FAERS Safety Report 8454996-1 (Version None)
Quarter: 2012Q2

REPORT INFORMATION
  Report Type: 
  Country: None (occurrence: None)
  Receive Date: 20120621
  Receipt Date: 20120611
  Transmission Date: 20120825
  Serious: Yes (Other)
  Sender: FDA-Public Use
  Company Number: CA-JNJFOC-20120605984

PATIENT
  Sex: Female
  Weight: 82.4 kg

DRUGS (4)
  1. REMICADE [Suspect]
     Indication: COLITIS ULCERATIVE
     Route: 042
  2. BENADRYL [Concomitant]
     Indication: PREMEDICATION
     Route: 042
     Dates: start: 20120611
  3. REMICADE [Suspect]
     Route: 042
     Dates: start: 20120611, end: 20120611
  4. SOLU-CORTEF [Concomitant]
     Indication: PREMEDICATION
     Route: 042
     Dates: start: 20120611

REACTIONS (5)
  - THROAT TIGHTNESS [None]
  - FLUSHING [None]
  - DYSPNOEA [None]
  - CHEST DISCOMFORT [None]
  - INFUSION RELATED REACTION [None]
